FAERS Safety Report 10403237 (Version 1)
Quarter: 2014Q3

REPORT INFORMATION
  Report Type: Spontaneous
  Country: US (occurrence: None)
  Receive Date: 20140820
  Receipt Date: 20140820
  Transmission Date: 20150326
  Serious: Yes (Hospitalization)
  Sender: FDA-Public Use
  Company Number: None

PATIENT
  Age: 42 Year
  Sex: Female
  Weight: 117.94 kg

DRUGS (1)
  1. NYSTATIN. [Suspect]
     Active Substance: NYSTATIN
     Indication: ORAL CANDIDIASIS
     Dosage: 1TSPN FOUR TIMES DAILY TAKEN BY MOUTH
     Route: 048
     Dates: start: 20140814, end: 20140817

REACTIONS (5)
  - Ventricular tachycardia [None]
  - Oropharyngeal pain [None]
  - Glossodynia [None]
  - Swollen tongue [None]
  - Pharyngeal oedema [None]

NARRATIVE: CASE EVENT DATE: 20140817
